FAERS Safety Report 7296786-1 (Version None)
Quarter: 2011Q1

REPORT INFORMATION
  Report Type: 
  Country: None (occurrence: None)
  Receive Date: 20110216
  Receipt Date: 20110211
  Transmission Date: 20110831
  Serious: Yes (Life-Threatening, Hospitalization)
  Sender: FDA-Public Use
  Company Number: B0699410A

PATIENT
  Sex: Male

DRUGS (1)
  1. AUGMENTIN [Suspect]
     Indication: SINUSITIS
     Route: 048
     Dates: start: 20100101, end: 20100101

REACTIONS (10)
  - DYSPNOEA [None]
  - RESPIRATORY DISORDER [None]
  - HYPOTENSION [None]
  - VOMITING [None]
  - ASTHENIA [None]
  - ANAPHYLACTIC REACTION [None]
  - URTICARIA [None]
  - ERYTHEMA [None]
  - ABDOMINAL PAIN [None]
  - CHILLS [None]
